FAERS Safety Report 5495190-6 (Version None)
Quarter: 2007Q4

REPORT INFORMATION
  Report Type: 
  Country: None (occurrence: None)
  Receive Date: 20071024
  Receipt Date: 20070927
  Transmission Date: 20080405
  Serious: No
  Sender: FDA-Public Use
  Company Number: US-AMGEN-US245259

PATIENT
  Sex: Male

DRUGS (3)
  1. VECTIBIX [Suspect]
     Indication: COLORECTAL CANCER
     Route: 065
     Dates: start: 20070803
  2. AVASTIN [Concomitant]
     Route: 065
  3. TAXOTERE [Concomitant]
     Route: 065

REACTIONS (2)
  - DERMATITIS ACNEIFORM [None]
  - PAIN [None]
